FAERS Safety Report 17373692 (Version 1)
Quarter: 2020Q1

REPORT INFORMATION
  Report Type: Spontaneous
  Country: US (occurrence: US)
  Receive Date: 20200206
  Receipt Date: 20200206
  Transmission Date: 20200409
  Serious: No
  Sender: FDA-Public Use
  Company Number: US-009507513-2001USA010575

PATIENT
  Sex: Female

DRUGS (2)
  1. NEXPLANON [Suspect]
     Active Substance: ETONOGESTREL
     Dosage: THE UNIT
     Route: 059
     Dates: start: 20200123, end: 20200123
  2. NEXPLANON [Suspect]
     Active Substance: ETONOGESTREL
     Dosage: ANOTHER UNIT/IMPLANT
     Route: 059
     Dates: start: 20200123

REACTIONS (3)
  - Complication of device insertion [Recovered/Resolved]
  - Product quality issue [Unknown]
  - Device difficult to use [Recovered/Resolved]

NARRATIVE: CASE EVENT DATE: 20200123
